FAERS Safety Report 4297653-8 (Version None)
Quarter: 2004Q1

REPORT INFORMATION
  Report Type: 
  Country: None (occurrence: None)
  Receive Date: 20040126
  Receipt Date: 20031103
  Transmission Date: 20041129
  Serious: No
  Sender: FDA-Public Use
  Company Number: USA031151454

PATIENT
  Age: 63 Year
  Sex: Female

DRUGS (5)
  1. STRATTERA [Suspect]
     Indication: DEPRESSION
     Dosage: 60 MG/DAY
     Dates: start: 20031028
  2. ATENOLOL [Concomitant]
  3. PROGESTIN INJ [Concomitant]
  4. MULTIVITAMINS NOS (MULTIVITAMINS NOS) [Concomitant]
  5. OSCAL 500-D [Concomitant]

REACTIONS (4)
  - DIARRHOEA [None]
  - DRY MOUTH [None]
  - DYSGEUSIA [None]
  - NAUSEA [None]
